FAERS Safety Report 4538897-7 (Version None)
Quarter: 2004Q4

REPORT INFORMATION
  Report Type: 
  Country: None (occurrence: None)
  Receive Date: 20041227
  Receipt Date: 20041217
  Transmission Date: 20050328
  Serious: Yes (Life-Threatening, Other)
  Sender: FDA-Public Use
  Company Number: FR-ABBOTT-04P-056-0284284-00

PATIENT
  Age: 37 Year
  Sex: Male
  Weight: 84 kg

DRUGS (7)
  1. KALETRA [Suspect]
     Indication: HIV INFECTION
     Route: 048
     Dates: start: 20040121
  2. BACTRIM [Suspect]
     Indication: DRUG USE FOR UNKNOWN INDICATION
     Route: 048
     Dates: start: 20040121
  3. DOCETAXEL [Suspect]
     Indication: KAPOSI'S SARCOMA
     Route: 042
     Dates: start: 20040126, end: 20040927
  4. DOCETAXEL [Suspect]
     Indication: UNEVALUABLE EVENT
  5. TENOFOVIR [Suspect]
     Indication: HIV INFECTION
     Route: 048
     Dates: start: 20040225
  6. DIDANOSINE [Suspect]
     Indication: HIV INFECTION
     Route: 048
     Dates: start: 20040225
  7. CALCIUM FOLINATE [Suspect]
     Indication: DRUG USE FOR UNKNOWN INDICATION
     Route: 048
     Dates: start: 20040121, end: 20041113

REACTIONS (4)
  - ASCITES [None]
  - CARDIAC TAMPONADE [None]
  - GENERALISED OEDEMA [None]
  - PERICARDIAL EFFUSION [None]
